FAERS Safety Report 6691314-3 (Version None)
Quarter: 2010Q2

REPORT INFORMATION
  Report Type: 
  Country: None (occurrence: None)
  Receive Date: 20100419
  Receipt Date: 20091021
  Transmission Date: 20101027
  Serious: Yes (Other)
  Sender: FDA-Public Use
  Company Number: 001975

PATIENT
  Sex: Male
  Weight: 85 kg

DRUGS (6)
  1. NEUPRO [Suspect]
     Indication: PARKINSON'S DISEASE
     Dosage: 4 MG QD TRANSDERMAL, 8 MG 1X/24 HOURS TRANSDERMAL
     Route: 062
  2. MADOPAR /00349201/ [Concomitant]
  3. METFORMIN [Concomitant]
  4. ATORVASTATIN [Concomitant]
  5. ALENDRONIC ACID [Concomitant]
  6. CALCIUM D3 /01483701/ [Concomitant]

REACTIONS (3)
  - CONDITION AGGRAVATED [None]
  - PARKINSON'S DISEASE [None]
  - PRODUCT QUALITY ISSUE [None]
